FAERS Safety Report 9784556 (Version 2)
Quarter: 2014Q1

REPORT INFORMATION
  Report Type: Spontaneous
  Country: US (occurrence: US)
  Receive Date: 20131226
  Receipt Date: 20140210
  Transmission Date: 20141002
  Serious: No
  Sender: FDA-Public Use
  Company Number: US-TEVA-449166USA

PATIENT
  Sex: Female

DRUGS (1)
  1. PROAIR HFA [Suspect]
     Route: 055

REACTIONS (5)
  - Wheezing [Unknown]
  - Cough [Unknown]
  - Drug effect decreased [Unknown]
  - Medical device complication [Unknown]
  - Device failure [Unknown]
